FAERS Safety Report 24430607 (Version 1)
Quarter: 2024Q4

REPORT INFORMATION
  Report Type: Report from Study
  Country: CO (occurrence: CO)
  Receive Date: 20241013
  Receipt Date: 20241013
  Transmission Date: 20250115
  Serious: Yes (Death)
  Sender: ABBVIE
  Company Number: CO-ABBVIE-5960567

PATIENT
  Age: 83 Year
  Sex: Female

DRUGS (1)
  1. VENCLEXTA [Suspect]
     Active Substance: VENETOCLAX
     Indication: Acute myeloid leukaemia
     Dosage: 400 MILLIGRAM
     Route: 048
     Dates: start: 20230609, end: 20240916

REACTIONS (6)
  - Death [Fatal]
  - Immunodeficiency [Unknown]
  - Infection [Unknown]
  - Abdominal pain upper [Not Recovered/Not Resolved]
  - Platelet count abnormal [Unknown]
  - Chills [Not Recovered/Not Resolved]

NARRATIVE: CASE EVENT DATE: 20241001
